FAERS Safety Report 6088525-7 (Version None)
Quarter: 2009Q1

REPORT INFORMATION
  Report Type: 
  Country: None (occurrence: None)
  Receive Date: 20090219
  Receipt Date: 20090213
  Transmission Date: 20090719
  Serious: Yes (Other)
  Sender: FDA-Public Use
  Company Number: 2009SP002604

PATIENT
  Age: 65 Year
  Sex: Female

DRUGS (2)
  1. PEG-INTRON [Suspect]
     Indication: HEPATITIS C
     Dosage: 80 MCG;QW; SC
     Route: 058
     Dates: start: 20081101
  2. REBETOL [Suspect]
     Indication: HEPATITIS C
     Dosage: 400 MG;QD; PO
     Route: 048
     Dates: start: 20081101

REACTIONS (1)
  - INTRACRANIAL ANEURYSM [None]
